FAERS Safety Report 25932312 (Version 1)
Quarter: 2025Q4

REPORT INFORMATION
  Report Type: Report from Study
  Country: EU (occurrence: EU)
  Receive Date: 20251016
  Receipt Date: 20251016
  Transmission Date: 20260118
  Serious: Yes (Hospitalization)
  Sender: ABBVIE
  Company Number: EU-ABBVIE-6504606

PATIENT
  Age: 73 Year
  Sex: Male

DRUGS (1)
  1. CARBIDOPA [Suspect]
     Active Substance: CARBIDOPA
     Indication: Parkinson^s disease
     Dosage: DAILY DOSE: 2,246.4 MG CRL: 0.28ML/H CRB: 0.42ML/H CRH: 0.38ML/H ED: 0.2ML?LD: 0.9ML
     Route: 058
     Dates: start: 20250520

REACTIONS (1)
  - Myocardial infarction [Recovered/Resolved]

NARRATIVE: CASE EVENT DATE: 20251001
